FAERS Safety Report 11250259 (Version 5)
Quarter: 2015Q4

REPORT INFORMATION
  Report Type: Spontaneous
  Country: JP (occurrence: JP)
  Receive Date: 20150708
  Receipt Date: 20151030
  Transmission Date: 20160304
  Serious: Yes (Hospitalization, Other)
  Sender: FDA-Public Use
  Company Number: JP-BRISTOL-MYERS SQUIBB COMPANY-BMS-2015-044293

PATIENT
  Age: 78 Year
  Sex: Female
  Weight: 38 kg

DRUGS (3)
  1. ORENCIA [Suspect]
     Active Substance: ABATACEPT
     Indication: RHEUMATOID ARTHRITIS
     Dosage: 250 MG, UNK
     Route: 042
     Dates: start: 20110120
  2. ORENCIA [Suspect]
     Active Substance: ABATACEPT
     Dosage: 125 UNK, UNK
     Route: 058
     Dates: start: 20150618
  3. ORENCIA [Suspect]
     Active Substance: ABATACEPT
     Dosage: 500 UNK, UNK
     Route: 065

REACTIONS (12)
  - Injury [Unknown]
  - Uterine cancer [Unknown]
  - Pain in extremity [Unknown]
  - Arthralgia [Unknown]
  - Blood uric acid increased [Unknown]
  - Insomnia [Unknown]
  - Dysuria [Unknown]
  - Cancer surgery [Unknown]
  - Cataract [Unknown]
  - Pulmonary calcification [Unknown]
  - Muscular weakness [Unknown]
  - Renal impairment [Unknown]

NARRATIVE: CASE EVENT DATE: 2014
